FAERS Safety Report 7635781-7 (Version None)
Quarter: 2011Q3

REPORT INFORMATION
  Report Type: 
  Country: None (occurrence: None)
  Receive Date: 20110726
  Receipt Date: 20110712
  Transmission Date: 20111222
  Serious: Yes (Hospitalization)
  Sender: FDA-Public Use
  Company Number: BR-AMGEN-QUU415838

PATIENT
  Age: 36 Year
  Sex: Female
  Weight: 61 kg

DRUGS (15)
  1. ENBREL [Suspect]
     Dosage: 25 MG, 2 TIMES/WK
     Route: 058
     Dates: start: 20091101, end: 20090101
  2. RITONAVIR [Concomitant]
     Dosage: 100 MG, QD
     Route: 048
     Dates: start: 20050101
  3. CIPROFIBRATE [Concomitant]
     Dosage: 10 MG, QD
     Dates: start: 20110101
  4. NEULEPTIL                          /00038401/ [Concomitant]
     Indication: DEPRESSION
     Dosage: 4 PERCENT IN DROPS
  5. IMIPRAMINE [Concomitant]
     Indication: DEPRESSION
     Dosage: 50 MG IN THE MORNING AND 150 MG AT NIGHT
     Dates: start: 20070101
  6. DIAZEPAM [Concomitant]
     Indication: ANXIETY
     Dosage: 10 MG, QD
     Dates: start: 20050101
  7. ENBREL [Suspect]
     Dosage: 25 MG, 2 TIMES/WK
     Route: 058
     Dates: start: 20091201, end: 20100201
  8. ENBREL [Suspect]
     Dosage: 25 MG, 2 TIMES/WK
     Route: 058
     Dates: end: 20110705
  9. BIOVIR [Concomitant]
     Dosage: 600 UNK
     Route: 048
     Dates: start: 20050101
  10. ENBREL [Suspect]
     Indication: RHEUMATOID ARTHRITIS
     Dosage: 25 MG, 2 TIMES/WK
     Route: 058
     Dates: start: 20090101, end: 20090901
  11. ENBREL [Suspect]
     Dosage: 25 MG, 2 TIMES/WK
     Route: 058
     Dates: start: 20100419, end: 20100401
  12. METHADONE HYDROCHLORIDE [Concomitant]
     Dosage: 10 MG, QD
     Route: 048
     Dates: start: 20090121
  13. RITALIN [Concomitant]
     Indication: DEPRESSION
     Dosage: 10 MG, QD
     Dates: start: 20100101
  14. ATAZANAVIR SULFATE [Concomitant]
     Dosage: 300 MG, QD
     Route: 048
     Dates: start: 20050101
  15. NEULEPTIL                          /00038401/ [Concomitant]
     Indication: ANXIETY

REACTIONS (9)
  - ERYTHEMA [None]
  - OEDEMA PERIPHERAL [None]
  - MASS [None]
  - HEADACHE [None]
  - PYREXIA [None]
  - SWELLING FACE [None]
  - CELLULITIS [None]
  - PROTEINURIA [None]
  - URINARY TRACT INFECTION [None]
